FAERS Safety Report 23404214 (Version 1)
Quarter: 2024Q1

REPORT INFORMATION
  Report Type: Report from Study
  Country: US (occurrence: None)
  Receive Date: 20240116
  Receipt Date: 20240116
  Transmission Date: 20240410
  Serious: Yes (Hospitalization)
  Sender: FDA-Public Use
  Company Number: 2024A009253

PATIENT
  Age: 22079 Day
  Sex: Female
  Weight: 74.4 kg

DRUGS (28)
  1. TRUQAP [Suspect]
     Active Substance: CAPIVASERTIB
     Indication: Breast cancer
     Route: 048
     Dates: start: 20240108
  2. ALBUTEROL [Concomitant]
     Active Substance: ALBUTEROL
  3. SINGULAIR [Concomitant]
     Active Substance: MONTELUKAST SODIUM
  4. ZTLIDO [Concomitant]
     Active Substance: LIDOCAINE
  5. LYRICA [Concomitant]
     Active Substance: PREGABALIN
  6. ZOFRAN [Concomitant]
     Active Substance: ONDANSETRON HYDROCHLORIDE
  7. ALREX [Concomitant]
     Active Substance: LOTEPREDNOL ETABONATE
  8. MAGNESIUM [Concomitant]
     Active Substance: MAGNESIUM
  9. CLARITIN [Concomitant]
     Active Substance: LORATADINE
  10. COENZYME Q10 [Concomitant]
     Active Substance: DIETARY SUPPLEMENT\UBIDECARENONE
  11. VITAMIN C [Concomitant]
     Active Substance: ASCORBIC ACID
  12. CALTRATE 600+D [Concomitant]
  13. VITAMIN D3 [Concomitant]
     Active Substance: CHOLECALCIFEROL
  14. PROTONIX [Concomitant]
     Active Substance: PANTOPRAZOLE SODIUM
  15. CARVEDILOL [Concomitant]
     Active Substance: CARVEDILOL
  16. EFFEXOR [Concomitant]
     Active Substance: VENLAFAXINE HYDROCHLORIDE
  17. LOSARTAN [Concomitant]
     Active Substance: LOSARTAN
  18. VITAMINS [Concomitant]
     Active Substance: VITAMINS
  19. XGEVA [Concomitant]
     Active Substance: DENOSUMAB
  20. FASLODEX [Concomitant]
     Active Substance: FULVESTRANT
  21. OMEGA 3 [Concomitant]
     Active Substance: CAPSAICIN
  22. GAMMAGARD [Concomitant]
     Active Substance: HUMAN IMMUNOGLOBULIN G
  23. IMODIUM AD [Concomitant]
     Active Substance: LOPERAMIDE HYDROCHLORIDE
  24. AZELASTINE [Concomitant]
     Active Substance: AZELASTINE\AZELASTINE HYDROCHLORIDE
  25. FLONASE [Concomitant]
     Active Substance: FLUTICASONE PROPIONATE
  26. MIRALAX [Concomitant]
     Active Substance: POLYETHYLENE GLYCOL 3350
  27. EPIPEN [Concomitant]
     Active Substance: EPINEPHRINE
  28. VOLTAREN [Concomitant]
     Active Substance: DICLOFENAC SODIUM

REACTIONS (5)
  - Chills [Not Recovered/Not Resolved]
  - Headache [Not Recovered/Not Resolved]
  - Abdominal pain [Not Recovered/Not Resolved]
  - Diarrhoea [Not Recovered/Not Resolved]
  - Blood lactic acid increased [Not Recovered/Not Resolved]

NARRATIVE: CASE EVENT DATE: 20240111
